FAERS Safety Report 10700711 (Version 1)
Quarter: 2015Q1

REPORT INFORMATION
  Report Type: Spontaneous
  Country: FR (occurrence: FR)
  Receive Date: 20150109
  Receipt Date: 20150109
  Transmission Date: 20150721
  Serious: Yes (Hospitalization)
  Sender: FDA-Public Use
  Company Number: FR-ELI_LILLY_AND_COMPANY-FR201412009771

PATIENT
  Age: 68 Year
  Sex: Female

DRUGS (4)
  1. VERATRAN [Concomitant]
     Active Substance: CLOTIAZEPAM
  2. CYMBALTA [Suspect]
     Active Substance: DULOXETINE HYDROCHLORIDE
     Indication: DEPRESSION
  3. CYMBALTA [Suspect]
     Active Substance: DULOXETINE HYDROCHLORIDE
     Indication: FIBROMYALGIA
     Dosage: 60 MG, QD
     Route: 048
     Dates: start: 201404, end: 20141103
  4. PIASCLEDINE                        /00809501/ [Concomitant]
     Active Substance: AVOCADO OIL\SOYBEAN OIL

REACTIONS (1)
  - Partial seizures [Not Recovered/Not Resolved]

NARRATIVE: CASE EVENT DATE: 201406
